FAERS Safety Report 12762666 (Version 4)
Quarter: 2017Q2

REPORT INFORMATION
  Report Type: Report from Study
  Country: JP (occurrence: JP)
  Receive Date: 20160920
  Receipt Date: 20170413
  Transmission Date: 20170830
  Serious: Yes (Hospitalization, Other)
  Sender: FDA-Public Use
  Company Number: JP-INCYTE CORPORATION-2016IN005687

PATIENT
  Age: 85 Year
  Sex: Female

DRUGS (5)
  1. OXYGEN. [Concomitant]
     Active Substance: OXYGEN
     Dosage: UNK
     Route: 065
  2. JAKAVI [Suspect]
     Active Substance: RUXOLITINIB
     Dosage: 5 MG, QW3
     Route: 048
     Dates: start: 20160824, end: 20160831
  3. OXYGEN. [Concomitant]
     Active Substance: OXYGEN
     Dosage: UNK
     Route: 065
  4. OXYGEN. [Concomitant]
     Active Substance: OXYGEN
     Indication: PRODUCT USED FOR UNKNOWN INDICATION
     Route: 065
  5. JAKAVI [Suspect]
     Active Substance: RUXOLITINIB
     Indication: MYELOFIBROSIS
     Dosage: 2.5 MG, BID
     Route: 048
     Dates: start: 20160615, end: 20160823

REACTIONS (3)
  - Anaemia [Recovering/Resolving]
  - White blood cell count increased [Unknown]
  - Cardiac failure [Recovered/Resolved]

NARRATIVE: CASE EVENT DATE: 201608
